FAERS Safety Report 8166802 (Version 7)
Quarter: 2014Q2

REPORT INFORMATION
  Report Type: Report from Study
  Country: CA (occurrence: CA)
  Receive Date: 20111003
  Receipt Date: 20140630
  Transmission Date: 20141212
  Serious: Yes (Hospitalization, Other)
  Sender: FDA-Public Use
  Company Number: PHHY2011CA76243

PATIENT
  Age: 65 Year
  Sex: Female

DRUGS (1)
  1. SANDOSTATIN LAR [Suspect]
     Indication: CARCINOID TUMOUR
     Dosage: 30 MG, EVERY 4 WEEKS
     Route: 030
     Dates: start: 20110621

REACTIONS (9)
  - Pancreatic disorder [Unknown]
  - Liver disorder [Unknown]
  - Oedema [Unknown]
  - Blood pressure diastolic decreased [Unknown]
  - Metastases to liver [Unknown]
  - Rash maculo-papular [Unknown]
  - Laceration [Unknown]
  - Blood pressure increased [Unknown]
  - Body temperature decreased [Unknown]
